FAERS Safety Report 14296492 (Version 1)
Quarter: 2017Q4

REPORT INFORMATION
  Report Type: Spontaneous
  Country: US (occurrence: US)
  Receive Date: 20171215
  Receipt Date: 20171215
  Transmission Date: 20180321
  Serious: Yes (Other)
  Sender: FDA-Public Use
  Company Number: None

PATIENT
  Age: 27 Year
  Sex: Female
  Weight: 95.25 kg

DRUGS (6)
  1. ONE A DAY FOR WOMEN [Concomitant]
  2. PANADOL [Concomitant]
     Active Substance: ACETAMINOPHEN
  3. IRON [Concomitant]
     Active Substance: IRON
  4. ACETAMINOPHEN. [Concomitant]
     Active Substance: ACETAMINOPHEN
  5. VAGILEN [Concomitant]
     Active Substance: METRONIDAZOLE
  6. MACROZIT AZITROMICINA, NA MG [Suspect]
     Active Substance: AZITHROMYCIN DIHYDRATE
     Dosage: ?          QUANTITY:500 TABLET(S);?
     Route: 048
     Dates: start: 20170930, end: 20171214

REACTIONS (6)
  - Nausea [None]
  - Sensory disturbance [None]
  - Acne [None]
  - Eructation [None]
  - Pruritus [None]
  - Abdominal pain upper [None]

NARRATIVE: CASE EVENT DATE: 20171214
